FAERS Safety Report 13307591 (Version 1)
Quarter: 2017Q1

REPORT INFORMATION
  Report Type: Spontaneous
  Country: JP (occurrence: JP)
  Receive Date: 20170308
  Receipt Date: 20170308
  Transmission Date: 20170428
  Serious: Yes (Death, Hospitalization)
  Sender: FDA-Public Use
  Company Number: JP-GE HEALTHCARE LIFE SCIENCES-MSTR-PR-1509S-0003

PATIENT

DRUGS (8)
  1. DENOSUMAB [Concomitant]
     Active Substance: DENOSUMAB
  2. METASTRON [Suspect]
     Active Substance: STRONTIUM CHLORIDE SR-89
     Indication: CANCER PAIN
     Dosage: 141 MBQ, SINGLE
     Route: 042
     Dates: start: 20150108, end: 20150108
  3. LEUPRORELIN ACETATE [Concomitant]
     Active Substance: LEUPROLIDE ACETATE
  4. FLUTAMIDE. [Concomitant]
     Active Substance: FLUTAMIDE
     Dosage: ,
  5. CELECOXIB. [Concomitant]
     Active Substance: CELECOXIB
     Dosage: ,
  6. METASTRON [Suspect]
     Active Substance: STRONTIUM CHLORIDE SR-89
     Dosage: DOSE NOT REPORTED
     Route: 042
     Dates: start: 20130919, end: 20130919
  7. REBAMIPIDE [Concomitant]
     Active Substance: REBAMIPIDE
     Dosage: ,
  8. OXYCODONE [Concomitant]
     Active Substance: OXYCODONE
     Dosage: ,

REACTIONS (5)
  - Sepsis [Not Recovered/Not Resolved]
  - Varicella [Not Recovered/Not Resolved]
  - Acute myeloid leukaemia [Fatal]
  - Myelodysplastic syndrome [Fatal]
  - Multiple organ dysfunction syndrome [Fatal]

NARRATIVE: CASE EVENT DATE: 2015
